FAERS Safety Report 8785522 (Version 1)
Quarter: 2012Q4

REPORT INFORMATION
  Report Type: 
  Country: GB (occurrence: GB)
  Receive Date: 20120914
  Receipt Date: 20120914
  Transmission Date: 20130627
  Serious: Yes (Other)
  Sender: FDA-Public Use
  Company Number: GB-PFIZER INC-2012223598

PATIENT
  Age: 62 Year
  Sex: Male
  Weight: 74 kg

DRUGS (5)
  1. LIPITOR [Suspect]
     Indication: BLOOD CHOLESTEROL INCREASED
     Dosage: 10 mg, 3x/day
     Route: 048
     Dates: start: 20090501
  2. LIPITOR [Suspect]
     Dosage: 20 mg, 3x/day
     Route: 048
     Dates: end: 20110701
  3. VITAMIN K [Concomitant]
  4. VITAMIN C [Concomitant]
  5. MAGNESIUM [Concomitant]

REACTIONS (4)
  - Arthralgia [Recovering/Resolving]
  - Myalgia [Recovering/Resolving]
  - Mobility decreased [Recovering/Resolving]
  - Pain [Unknown]
